FAERS Safety Report 10077048 (Version 1)
Quarter: 2014Q2

REPORT INFORMATION
  Report Type: Spontaneous
  Country: GB (occurrence: None)
  Receive Date: 20140410
  Receipt Date: 20140410
  Transmission Date: 20141212
  Serious: Yes (Disabling)
  Sender: FDA-Public Use
  Company Number: SYM-2014-19523

PATIENT
  Age: 44 Year
  Sex: Female
  Weight: 99.79 kg

DRUGS (3)
  1. TIMOLOL MALEATE [Suspect]
     Indication: PRODUCT USED FOR UNKNOWN INDICATION
     Route: 048
     Dates: start: 20140306, end: 20140311
  2. TRAMADOL HYDROCHLORIDE [Suspect]
     Indication: PRODUCT USED FOR UNKNOWN INDICATION
     Dates: start: 20140306
  3. AMITRIPTYLINE HYDROCHLORIDE [Concomitant]

REACTIONS (5)
  - Vomiting [None]
  - Blood pressure systolic increased [None]
  - Vertigo [None]
  - Dizziness [None]
  - Burning sensation [None]
